FAERS Safety Report 8223252-9 (Version None)
Quarter: 2012Q1

REPORT INFORMATION
  Report Type: 
  Country: None (occurrence: None)
  Receive Date: 20120321
  Receipt Date: 20120308
  Transmission Date: 20120608
  Serious: Yes (Other)
  Sender: FDA-Public Use
  Company Number: US-ROCHE-792061

PATIENT
  Sex: Female
  Weight: 108.96 kg

DRUGS (2)
  1. ACCUTANE [Suspect]
     Indication: ACNE
     Route: 065
     Dates: start: 19820801, end: 19840630
  2. ACCUTANE [Suspect]
     Route: 065
     Dates: start: 19880101, end: 19890101

REACTIONS (5)
  - IRRITABLE BOWEL SYNDROME [None]
  - INFLAMMATORY BOWEL DISEASE [None]
  - CROHN'S DISEASE [None]
  - DIVERTICULITIS [None]
  - COLITIS ULCERATIVE [None]
